FAERS Safety Report 16002897 (Version 4)
Quarter: 2019Q2

REPORT INFORMATION
  Report Type: Spontaneous
  Country: US (occurrence: US)
  Receive Date: 20190225
  Receipt Date: 20190530
  Transmission Date: 20190711
  Serious: No
  Sender: FDA-Public Use
  Company Number: US-SA-2019SA049459

PATIENT
  Age: 48 Year
  Sex: Female

DRUGS (2)
  1. KEVZARA [Suspect]
     Active Substance: SARILUMAB
     Dosage: 200 MG, QOW
     Route: 058
     Dates: start: 201901
  2. KEVZARA [Suspect]
     Active Substance: SARILUMAB
     Dosage: 200 MG, Q3W
     Route: 058

REACTIONS (6)
  - Injection site erythema [Unknown]
  - Injection site pruritus [Unknown]
  - Inappropriate schedule of product administration [Unknown]
  - Injection site swelling [Unknown]
  - Hepatic enzyme increased [Unknown]
  - Injection site pain [Unknown]

NARRATIVE: CASE EVENT DATE: 2019
